FAERS Safety Report 8002958-0 (Version None)
Quarter: 2011Q4

REPORT INFORMATION
  Report Type: 
  Country: None (occurrence: None)
  Receive Date: 20111222
  Receipt Date: 20110511
  Transmission Date: 20120403
  Serious: No
  Sender: FDA-Public Use
  Company Number: US-GLAXOSMITHKLINE-A0926980A

PATIENT
  Age: 66 Year
  Sex: Female

DRUGS (6)
  1. AVODART [Suspect]
     Indication: DRUG ADMINISTRATION ERROR
     Dosage: .5MG SINGLE DOSE
     Route: 048
     Dates: start: 20110511
  2. GLUCOSAMINE [Concomitant]
  3. SYNTHROID [Concomitant]
  4. FISH OIL [Concomitant]
  5. CALCIUM [Concomitant]
  6. B-100 [Concomitant]

REACTIONS (1)
  - DRUG ADMINISTRATION ERROR [None]
